FAERS Safety Report 5699986-7 (Version None)
Quarter: 2008Q2

REPORT INFORMATION
  Report Type: 
  Country: None (occurrence: None)
  Receive Date: 20080410
  Receipt Date: 20080403
  Transmission Date: 20081010
  Serious: Yes (Other)
  Sender: FDA-Public Use
  Company Number: PHHY2008BR04774

PATIENT
  Age: 50 Year
  Sex: Male

DRUGS (1)
  1. CATAFLAM [Suspect]

REACTIONS (5)
  - DRUG HYPERSENSITIVITY [None]
  - FORMICATION [None]
  - IRRITABILITY [None]
  - PRURITUS [None]
  - SWELLING [None]
